FAERS Safety Report 9148415 (Version 1)
Quarter: 2013Q1

REPORT INFORMATION
  Report Type: Spontaneous
  Country: US (occurrence: None)
  Receive Date: 20130219
  Receipt Date: 20130219
  Transmission Date: 20140127
  Serious: Yes (Death)
  Sender: FDA-Public Use
  Company Number: 2013-00353

PATIENT
  Age: 22 Year
  Sex: Male

DRUGS (4)
  1. AMLODIPINE (UNKNOWN) [Suspect]
  2. METOPROLOL [Suspect]
  3. VERAPAMIL [Suspect]
  4. ATENOLOL (UNKNOWN) [Suspect]

REACTIONS (1)
  - Death [None]
